FAERS Safety Report 4411961-9 (Version None)
Quarter: 2004Q2

REPORT INFORMATION
  Report Type: 
  Country: None (occurrence: None)
  Receive Date: 20040630
  Receipt Date: 20040326
  Transmission Date: 20050107
  Serious: No
  Sender: FDA-Public Use
  Company Number: 04P-163-0254819-00

PATIENT
  Age: 75 Year
  Sex: Female

DRUGS (6)
  1. HUMIRA [Suspect]
     Indication: RHEUMATOID ARTHRITIS
     Dosage: 40 MG, 1 IN 2 WK, SUBCUTANEOUS
     Route: 058
     Dates: start: 20030429
  2. ROFECOXIB [Concomitant]
  3. CONJUGATED ESTROGEN [Concomitant]
  4. MEDROXYPROGESTERONE ACETATE [Concomitant]
  5. TOCOPHEROL CONCENTRATE CAP [Concomitant]
  6. LISINOPRIL [Concomitant]

REACTIONS (2)
  - NASOPHARYNGITIS [None]
  - PRODUCTIVE COUGH [None]
